FAERS Safety Report 17043999 (Version 1)
Quarter: 2019Q4

REPORT INFORMATION
  Report Type: Report from Study
  Country: GB (occurrence: GB)
  Receive Date: 20191118
  Receipt Date: 20191118
  Transmission Date: 20200122
  Serious: Yes (Hospitalization, Other)
  Sender: FDA-Public Use
  Company Number: PHFR2015GB001674

PATIENT
  Age: 67 Year
  Sex: Female
  Weight: 69 kg

DRUGS (1)
  1. GILENYA [Suspect]
     Active Substance: FINGOLIMOD HYDROCHLORIDE
     Indication: MULTIPLE SCLEROSIS
     Dosage: 0.5 MG, QD
     Route: 048
     Dates: start: 20140703

REACTIONS (11)
  - Pyrexia [Recovered/Resolved]
  - Fall [Recovered/Resolved]
  - Urinary retention [Unknown]
  - Urinary incontinence [Unknown]
  - Contusion [Recovered/Resolved]
  - Dyspnoea [Recovered/Resolved]
  - Muscular weakness [Recovered/Resolved]
  - Skin lesion [Unknown]
  - Fall [Recovered/Resolved]
  - Productive cough [Recovered/Resolved]
  - Peroneal nerve palsy [Unknown]

NARRATIVE: CASE EVENT DATE: 20141223
